FAERS Safety Report 21465982 (Version 3)
Quarter: 2023Q2

REPORT INFORMATION
  Report Type: Report from Study
  Country: BR (occurrence: BR)
  Receive Date: 20221017
  Receipt Date: 20230421
  Transmission Date: 20230721
  Serious: Yes (Other)
  Sender: FDA-Public Use
  Company Number: BR-NOVARTISPH-NVSC2022BR230712

PATIENT
  Sex: Female

DRUGS (7)
  1. ENTRESTO [Suspect]
     Active Substance: SACUBITRIL\VALSARTAN
     Indication: Product used for unknown indication
     Dosage: 100 MG, QD
     Route: 065
  2. ENTRESTO [Suspect]
     Active Substance: SACUBITRIL\VALSARTAN
     Dosage: 100 MG, BID
     Route: 065
  3. ENTRESTO [Suspect]
     Active Substance: SACUBITRIL\VALSARTAN
     Dosage: 100 MG, TID
     Route: 065
  4. ENTRESTO [Suspect]
     Active Substance: SACUBITRIL\VALSARTAN
     Dosage: 200 MG, BID
     Route: 065
  5. ENTRESTO [Suspect]
     Active Substance: SACUBITRIL\VALSARTAN
     Dosage: 200 MG
     Route: 065
  6. ENTRESTO [Suspect]
     Active Substance: SACUBITRIL\VALSARTAN
     Dosage: 200 MG, BID (IN THE MORNING AND AT NIGHT)
     Route: 065
  7. DAPAGLIFLOZIN [Concomitant]
     Active Substance: DAPAGLIFLOZIN
     Indication: Product used for unknown indication
     Dosage: UNK
     Route: 065

REACTIONS (22)
  - Ejection fraction decreased [Unknown]
  - Infarction [Unknown]
  - Respiratory failure [Recovering/Resolving]
  - Flatulence [Recovering/Resolving]
  - Eructation [Recovering/Resolving]
  - Chest pain [Recovering/Resolving]
  - Abdominal pain upper [Unknown]
  - Visual impairment [Unknown]
  - Hypertension [Unknown]
  - Gait disturbance [Unknown]
  - Feeling abnormal [Unknown]
  - Back pain [Recovering/Resolving]
  - Chest discomfort [Unknown]
  - Gastrooesophageal reflux disease [Not Recovered/Not Resolved]
  - Weight decreased [Unknown]
  - Dyspnoea [Recovering/Resolving]
  - Gastritis [Unknown]
  - Fatigue [Recovering/Resolving]
  - Dizziness [Unknown]
  - Product availability issue [Unknown]
  - Inappropriate schedule of product administration [Unknown]
  - Extra dose administered [Unknown]

NARRATIVE: CASE EVENT DATE: 20090101
